FAERS Safety Report 5506750-8 (Version None)
Quarter: 2007Q4

REPORT INFORMATION
  Report Type: 
  Country: None (occurrence: None)
  Receive Date: 20071105
  Receipt Date: 20071029
  Transmission Date: 20080405
  Serious: Yes (Hospitalization)
  Sender: FDA-Public Use
  Company Number: US-ELI_LILLY_AND_COMPANY-US200710007508

PATIENT
  Sex: Male

DRUGS (9)
  1. HUMULIN 70/30 [Suspect]
  2. HUMALOG MIX 75/25 [Suspect]
     Dosage: 40 U, EACH MORNING
     Route: 058
  3. HUMALOG MIX 75/25 [Suspect]
     Dosage: 5 U, EACH EVENING
     Route: 058
  4. HYDROCHLOROTHIAZIDE [Concomitant]
     Dosage: 12.5 MG, 2/D
     Route: 048
  5. LISINOPRIL [Concomitant]
     Indication: BLOOD PRESSURE
     Dosage: 5 MG/KG, 2/D
     Route: 048
  6. MULTI-VITAMIN [Concomitant]
     Indication: SUPPLEMENTATION THERAPY
     Dosage: UNK, DAILY (1/D)
  7. ZOLOFT [Concomitant]
     Dosage: 50 MG, EACH EVENING
  8. ZOCOR [Concomitant]
     Indication: BLOOD CHOLESTEROL
     Dosage: 40 MG, DAILY (1/D)
     Route: 048
  9. TRAZODONE HCL [Concomitant]
     Indication: SLEEP DISORDER
     Dosage: 50 MG, AS NEEDED BEDTIME
     Route: 048

REACTIONS (1)
  - HOSPITALISATION [None]
